FAERS Safety Report 26130876 (Version 2)
Quarter: 2025Q4

REPORT INFORMATION
  Report Type: Report from Study
  Country: US (occurrence: US)
  Receive Date: 20251208
  Receipt Date: 20251217
  Transmission Date: 20260118
  Serious: No
  Sender: MALLINCKRODT
  Company Number: US-MALLINCKRODT-MNK202507800

PATIENT
  Age: 63 Year
  Sex: Female

DRUGS (1)
  1. CORTICOTROPIN [Suspect]
     Active Substance: CORTICOTROPIN
     Indication: Orbital myositis
     Dosage: 80 UNITS
     Route: 058
     Dates: start: 20250424, end: 202510

REACTIONS (4)
  - Joint swelling [Unknown]
  - Rhinorrhoea [Unknown]
  - Rash [Not Recovered/Not Resolved]
  - Swelling face [Unknown]

NARRATIVE: CASE EVENT DATE: 20250101
